FAERS Safety Report 9280560 (Version 2)
Quarter: 2013Q2

REPORT INFORMATION
  Report Type: Spontaneous
  Country: GB (occurrence: None)
  Receive Date: 20130503
  Receipt Date: 20130514
  Transmission Date: 20140414
  Serious: Yes (Hospitalization, Disabling)
  Sender: FDA-Public Use
  Company Number: SYM-2013-03444

PATIENT
  Age: 71 Year
  Sex: Female

DRUGS (7)
  1. 5-FU [Suspect]
     Indication: COLORECTAL CANCER METASTATIC
     Route: 040
     Dates: start: 20130308, end: 20130308
  2. LEUCOVORIN [Suspect]
     Indication: COLORECTAL CANCER METASTATIC
     Route: 042
     Dates: start: 20130308, end: 20130308
  3. IRINOTECAN [Suspect]
     Indication: COLORECTAL CANCER METASTATIC
     Route: 040
     Dates: start: 20130308, end: 20130308
  4. AFLIBERCEPT [Suspect]
     Indication: COLORECTAL CANCER METASTATIC
     Route: 042
     Dates: start: 20130308, end: 20130308
  5. ONDANSETRON [Concomitant]
  6. DEXAMETHASONE [Concomitant]
  7. ATROPINE [Concomitant]

REACTIONS (4)
  - Dyspnoea at rest [None]
  - Epistaxis [None]
  - Hypertension [None]
  - Aortic thrombosis [None]
